FAERS Safety Report 16468495 (Version 1)
Quarter: 2019Q2

REPORT INFORMATION
  Report Type: Report from Study
  Country: IT (occurrence: IT)
  Receive Date: 20190624
  Receipt Date: 20190624
  Transmission Date: 20190711
  Serious: Yes (Other)
  Sender: FDA-Public Use
  Company Number: IT-ROCHE-2336875

PATIENT
  Age: 56 Year
  Sex: Female
  Weight: 60 kg

DRUGS (15)
  1. PERTUZUMAB. [Suspect]
     Active Substance: PERTUZUMAB
     Indication: BREAST CANCER
     Dosage: Q3W - EVERY 3 WEEKS
     Route: 042
     Dates: start: 20171116, end: 20180917
  2. TACHIPIRINA [Concomitant]
     Active Substance: ACETAMINOPHEN
     Dosage: ONGOING = CHECKED
     Route: 065
     Dates: start: 20190104
  3. TRASTUZUMAB. [Suspect]
     Active Substance: TRASTUZUMAB
     Indication: BREAST CANCER
     Dosage: Q3W - EVERY 3 WEEKS
     Route: 041
     Dates: start: 20171116, end: 20180917
  4. TRASTUZUMAB EMTANSINE [Suspect]
     Active Substance: ADO-TRASTUZUMAB EMTANSINE
     Indication: BREAST CANCER
     Dosage: FREQUENCY: Q3W - EVERY 3 WEEKS MOST RECENT DOSE PRIOR TO THE EVENT: 20181009
     Route: 042
     Dates: start: 20181008, end: 20181107
  5. EUTIROX [Concomitant]
     Active Substance: LEVOTHYROXINE SODIUM
     Dosage: ONGOING = CHECKED
     Route: 065
  6. RAMIPRIL. [Concomitant]
     Active Substance: RAMIPRIL
     Dosage: ONGOING = CHECKED
     Route: 065
  7. BISOPROLOLO [Concomitant]
     Active Substance: BISOPROLOL FUMARATE
     Dosage: ONGOING = CHECKED
     Route: 065
  8. TAXOTERE [Suspect]
     Active Substance: DOCETAXEL
     Indication: BREAST CANCER
     Dosage: Q3W - EVERY 3 WEEKS
     Route: 042
     Dates: start: 20171116, end: 20180305
  9. MOVICOL [Concomitant]
     Active Substance: POLYETHYLENE GLYCOL 3350\POTASSIUM CHLORIDE\SODIUM BICARBONATE\SODIUM CHLORIDE
     Dosage: ONGOING = CHECKED
     Route: 065
  10. SETOFILM [Concomitant]
     Active Substance: ONDANSETRON
     Dosage: ONGOING = CHECKED
     Route: 065
  11. STILNOX [Concomitant]
     Active Substance: ZOLPIDEM TARTRATE
     Dosage: ONGOING = CHECKED
     Route: 065
     Dates: start: 20180327
  12. LANSOPRAZOLO [Concomitant]
     Active Substance: LANSOPRAZOLE
     Dosage: ONGOING = CHECKED
     Route: 065
  13. PLASIL [METOCLOPRAMIDE] [Concomitant]
     Dosage: ONGOING = CHECKED
     Route: 065
  14. TRIMBOW [Concomitant]
     Active Substance: BECLOMETHASONE DIPROPIONATE\FORMOTEROL FUMARATE\GLYCOPYRROLATE
     Indication: CHRONIC OBSTRUCTIVE PULMONARY DISEASE
     Dosage: ONGOING = CHECKED
     Route: 065
     Dates: start: 20190319
  15. BRUFEN [IBUPROFEN] [Concomitant]
     Active Substance: IBUPROFEN
     Dosage: ONGOING = CHECKED
     Route: 065
     Dates: start: 20190104

REACTIONS (3)
  - Headache [Not Recovered/Not Resolved]
  - Contusion [Not Recovered/Not Resolved]
  - Epilepsy [Recovered/Resolved]

NARRATIVE: CASE EVENT DATE: 20190530
